FAERS Safety Report 4849953-8 (Version None)
Quarter: 2005Q4

REPORT INFORMATION
  Report Type: 
  Country: None (occurrence: None)
  Receive Date: 20051101
  Receipt Date: 20050616
  Transmission Date: 20060501
  Serious: Yes (Hospitalization)
  Sender: FDA-Public Use
  Company Number: 200510290BCA

PATIENT
  Age: 6 Month
  Sex: Male
  Weight: 9 kg

DRUGS (4)
  1. GAMUNEX [Suspect]
     Dosage: 2.7 G, TOTAL DAILY, INTRAVENOUS
     Route: 042
     Dates: start: 20050301
  2. GAMUNEX [Suspect]
     Dosage: 5 G, TOTAL DAILY, INTRAVENOUS
     Route: 042
     Dates: start: 20050301
  3. GAMUNEX [Suspect]
     Dosage: 2.5 G, TOTAL DAILY, INTRAVENOUS
     Dates: start: 20050301
  4. GAMUNEX [Suspect]
     Dosage: 2.5 G, TOTAL DAILY, INTRAVENOUS
     Dates: start: 20050301

REACTIONS (1)
  - HAEMOLYTIC ANAEMIA [None]
